FAERS Safety Report 6011895-2 (Version None)
Quarter: 2008Q4

REPORT INFORMATION
  Report Type: 
  Country: None (occurrence: None)
  Receive Date: 20081218
  Receipt Date: 20080929
  Transmission Date: 20090506
  Serious: No
  Sender: FDA-Public Use
  Company Number: US-ASTRAZENECA-2008UW21017

PATIENT
  Age: 67 Year
  Sex: Male
  Weight: 106.6 kg

DRUGS (4)
  1. CRESTOR [Suspect]
     Route: 048
     Dates: start: 20080922
  2. BENACAR [Concomitant]
  3. PROPRANOLOL SA [Concomitant]
  4. MULTI-VITAMINS [Concomitant]

REACTIONS (3)
  - ABDOMINAL PAIN UPPER [None]
  - DRUG DISPENSING ERROR [None]
  - MUSCULAR WEAKNESS [None]
